FAERS Safety Report 7940714-X (Version None)
Quarter: 2011Q4

REPORT INFORMATION
  Report Type: 
  Country: None (occurrence: None)
  Receive Date: 20111114
  Receipt Date: 20101001
  Transmission Date: 20120403
  Serious: Yes (Hospitalization)
  Sender: FDA-Public Use
  Company Number: 2010S1001425

PATIENT
  Age: 40 Year
  Sex: Male
  Weight: 83 kg

DRUGS (4)
  1. PROVENTIL PLUS [Concomitant]
  2. CUBICIN [Suspect]
     Indication: CELLULITIS
     Dosage: 6 MG/KG;X1;IV
     Route: 042
     Dates: start: 20100928, end: 20100928
  3. CEFTRIAXONE [Concomitant]
  4. LORATADINE AND PSEUDOEPHEDRINE SULFATE [Concomitant]

REACTIONS (1)
  - ANAPHYLACTIC REACTION [None]
